FAERS Safety Report 14112060 (Version 6)
Quarter: 2019Q1

REPORT INFORMATION
  Report Type: Spontaneous
  Country: AT (occurrence: AT)
  Receive Date: 20171020
  Receipt Date: 20190103
  Transmission Date: 20190417
  Serious: Yes (Hospitalization, Other)
  Sender: FDA-Public Use
  Company Number: AT-PFIZER INC-2017444686

PATIENT
  Age: 67 Year
  Sex: Female

DRUGS (37)
  1. ABILIFY [Suspect]
     Active Substance: ARIPIPRAZOLE
     Dosage: 7.5 MG, UNK
     Route: 048
     Dates: start: 20160704, end: 2016
  2. GLUCOPHAGE [Concomitant]
     Active Substance: METFORMIN HYDROCHLORIDE
     Dosage: 500 MG, UNK
     Dates: start: 20170614, end: 20170703
  3. SEROQUEL [Suspect]
     Active Substance: QUETIAPINE FUMARATE
     Dosage: 400 MG, UNK
     Route: 048
     Dates: start: 20170614, end: 20170616
  4. ABILIFY [Suspect]
     Active Substance: ARIPIPRAZOLE
     Dosage: 10 MG, 1X/DAY
     Route: 048
     Dates: start: 20170727
  5. PRAXITEN [Concomitant]
     Active Substance: OXAZEPAM
     Dosage: 75 MG, UNK
     Route: 048
     Dates: start: 20170705, end: 20170706
  6. MOLAXOLE [Concomitant]
     Active Substance: POLYETHYLENE GLYCOL 3350\POTASSIUM CHLORIDE\SODIUM BICARBONATE\SODIUM CHLORIDE
     Dosage: 1 DF, UNK
     Dates: start: 20170614, end: 20170707
  7. PANTOLOC [Concomitant]
     Active Substance: PANTOPRAZOLE SODIUM
     Dosage: 40 MG, UNK
     Dates: start: 20170614, end: 20170707
  8. RISPERDAL [Concomitant]
     Active Substance: RISPERIDONE
     Dosage: 1 MG, UNK
     Dates: start: 20170626, end: 20170629
  9. RISPERDAL [Concomitant]
     Active Substance: RISPERIDONE
     Dosage: 3 MG, UNK
     Dates: start: 20170630, end: 20170630
  10. RISPERDAL [Concomitant]
     Active Substance: RISPERIDONE
     Dosage: 4 MG, UNK
     Dates: start: 20170701, end: 20170702
  11. SEROQUEL [Suspect]
     Active Substance: QUETIAPINE FUMARATE
     Dosage: 250 MG, UNK
     Route: 048
     Dates: start: 20170619, end: 20170619
  12. LEPONEX [Suspect]
     Active Substance: CLOZAPINE
     Dosage: 400 MG, UNK
     Route: 048
     Dates: start: 20170526, end: 20170619
  13. ABILIFY [Suspect]
     Active Substance: ARIPIPRAZOLE
     Dosage: 15 MG, UNK
     Route: 048
     Dates: start: 2016, end: 20161122
  14. PRAXITEN [Concomitant]
     Active Substance: OXAZEPAM
     Dosage: 97.5 MG, UNK
     Route: 048
     Dates: start: 20170617, end: 20170617
  15. NACL [Concomitant]
     Active Substance: SODIUM CHLORIDE
     Dosage: 2 DF, UNK
     Dates: start: 20170614, end: 20170620
  16. AKINETON [Suspect]
     Active Substance: BIPERIDEN HYDROCHLORIDE
     Dosage: 4 MG, UNK
     Dates: start: 20170703, end: 20170707
  17. TEMESTA [LORAZEPAM] [Concomitant]
     Active Substance: LORAZEPAM
     Dosage: 2.5 MG, UNK
     Dates: start: 20170720
  18. PRAXITEN [Concomitant]
     Active Substance: OXAZEPAM
     Dosage: 130 MG, UNK
     Route: 048
     Dates: start: 20170614, end: 20170616
  19. PRAXITEN [Concomitant]
     Active Substance: OXAZEPAM
     Dosage: 150 MG, UNK
     Route: 048
     Dates: start: 20170701, end: 20170704
  20. SELEXID [Concomitant]
     Dosage: 400 MG, UNK
     Dates: start: 20170627, end: 20170630
  21. SERTRALINE HCL [Suspect]
     Active Substance: SERTRALINE HYDROCHLORIDE
     Dosage: 100 MG, UNK
     Dates: start: 20170614, end: 20170619
  22. SEROQUEL [Suspect]
     Active Substance: QUETIAPINE FUMARATE
     Dosage: 175 MG, UNK
     Route: 048
     Dates: start: 20170620, end: 20170620
  23. LEPONEX [Suspect]
     Active Substance: CLOZAPINE
     Dosage: 350 MG, UNK
     Route: 048
     Dates: start: 20170620, end: 20170620
  24. PRAXITEN [Concomitant]
     Active Substance: OXAZEPAM
     Dosage: 100 MG, UNK
     Route: 048
     Dates: start: 20170621, end: 20170626
  25. RISPERDAL [Concomitant]
     Active Substance: RISPERIDONE
     Dosage: 1 MG, UNK
     Dates: start: 20170706, end: 20170706
  26. LAEVOLAC [Concomitant]
     Active Substance: LACTULOSE
     Dosage: 2 SOUP SPOONS
     Dates: start: 20170723
  27. AKINETON [Suspect]
     Active Substance: BIPERIDEN HYDROCHLORIDE
     Dosage: 4 MG, UNK
     Dates: start: 20170614, end: 20170622
  28. AMANTADINE SULFATE [Concomitant]
     Active Substance: AMANTADINE SULFATE
     Dosage: 200 MG, UNK
     Dates: start: 20170708, end: 20170719
  29. SEROQUEL [Suspect]
     Active Substance: QUETIAPINE FUMARATE
     Dosage: 300 MG, UNK
     Route: 048
     Dates: start: 20170617, end: 20170618
  30. ABILIFY [Suspect]
     Active Substance: ARIPIPRAZOLE
     Dosage: 5 MG, 1X/DAY
     Route: 048
     Dates: start: 20170725, end: 20170726
  31. TEMESTA [LORAZEPAM] [Concomitant]
     Active Substance: LORAZEPAM
     Dosage: 3 MG, UNK
     Dates: start: 20170707, end: 20170719
  32. PRAXITEN [Concomitant]
     Active Substance: OXAZEPAM
     Dosage: 90 MG, UNK
     Route: 048
     Dates: start: 20170618, end: 20170618
  33. RISPERDAL [Concomitant]
     Active Substance: RISPERIDONE
     Dosage: 2 MG, UNK
     Dates: start: 20170703, end: 20170704
  34. RISPERDAL [Concomitant]
     Active Substance: RISPERIDONE
     Dosage: 1.5 MG, UNK
     Dates: start: 20170705, end: 20170705
  35. PRAXITEN [Concomitant]
     Active Substance: OXAZEPAM
     Dosage: 40 MG, UNK
     Route: 048
     Dates: start: 20170619, end: 20170620
  36. PRAXITEN [Concomitant]
     Active Substance: OXAZEPAM
     Dosage: 50 MG, UNK
     Route: 048
     Dates: start: 20170626, end: 20170630
  37. LOVENOX [Concomitant]
     Active Substance: ENOXAPARIN SODIUM
     Dosage: 40 MG, UNK
     Dates: start: 20170621, end: 20170729

REACTIONS (3)
  - Delirium [Recovered/Resolved]
  - Extrapyramidal disorder [Recovered/Resolved]
  - Neuroleptic malignant syndrome [Recovered/Resolved]

NARRATIVE: CASE EVENT DATE: 20170619
